FAERS Safety Report 16349749 (Version 2)
Quarter: 2019Q2

REPORT INFORMATION
  Report Type: Report from Study
  Country: JP (occurrence: JP)
  Receive Date: 20190523
  Receipt Date: 20190528
  Transmission Date: 20190711
  Serious: Yes (Death, Life-Threatening, Hospitalization, Other)
  Sender: FDA-Public Use
  Company Number: JP-GILEAD-2013-0088135

PATIENT
  Age: 57 Year
  Sex: Female
  Weight: 63 kg

DRUGS (54)
  1. ULCERLMIN [Concomitant]
     Active Substance: SUCRALFATE
     Dosage: UNK
     Dates: end: 20130714
  2. FESIN [SACCHARATED IRON OXIDE] [Concomitant]
     Dosage: UNK
     Dates: start: 20130220, end: 20130220
  3. FUROSEMIDE. [Concomitant]
     Active Substance: FUROSEMIDE
     Dosage: UNK
     Dates: start: 20130606, end: 20130714
  4. MEYLON INJECTION [Concomitant]
     Indication: ACIDOSIS
     Dosage: UNK
     Dates: start: 20130714, end: 20130714
  5. PREDONINE [Concomitant]
     Active Substance: PREDNISOLONE
     Dosage: UNK
     Dates: end: 20130714
  6. URSO [Concomitant]
     Active Substance: URSODIOL
     Dosage: UNK
     Dates: end: 20130714
  7. AMBRISENTAN [Suspect]
     Active Substance: AMBRISENTAN
     Indication: PULMONARY HYPERTENSION
     Dosage: 5 MG, QD
     Route: 048
     Dates: start: 20110604, end: 20110607
  8. AMBRISENTAN [Suspect]
     Active Substance: AMBRISENTAN
     Dosage: 5/2.5 MG
     Route: 048
     Dates: start: 20110715, end: 20110928
  9. DOBUPUM [Concomitant]
     Active Substance: DOBUTAMINE HYDROCHLORIDE
     Indication: RIGHT VENTRICULAR FAILURE
     Dosage: UNK
     Dates: start: 20121123, end: 20121204
  10. VASOLAN [VERAPAMIL HYDROCHLORIDE] [Concomitant]
     Active Substance: VERAPAMIL HYDROCHLORIDE
     Dosage: UNK
     Dates: start: 20121227, end: 20121227
  11. SOL-MELCORT [Concomitant]
     Active Substance: METHYLPREDNISOLONE SODIUM SUCCINATE
     Indication: PULMONARY FIBROSIS
     Dosage: UNK
     Dates: start: 20130618, end: 20130620
  12. SAMSCA [Concomitant]
     Active Substance: TOLVAPTAN
     Dosage: UNK
     Dates: start: 20130609, end: 20130714
  13. BACTRIM [Concomitant]
     Active Substance: SULFAMETHOXAZOLE\TRIMETHOPRIM
     Dosage: UNK
     Dates: start: 20130307, end: 20130714
  14. LASIX [Concomitant]
     Active Substance: FUROSEMIDE
     Dosage: UNK
     Dates: end: 20130714
  15. FLUITRAN [Concomitant]
     Active Substance: TRICHLORMETHIAZIDE
     Dosage: UNK
     Dates: start: 20101111, end: 20130714
  16. URSO [Concomitant]
     Active Substance: URSODIOL
     Dosage: UNK
     Route: 048
     Dates: end: 20130714
  17. FESIN [SACCHARATED IRON OXIDE] [Concomitant]
     Dosage: UNK
     Dates: start: 20130412, end: 20130413
  18. MORPHINE [MORPHINE HYDROCHLORIDE] [Concomitant]
     Dosage: UNK
     Dates: start: 20130714, end: 20130714
  19. PIMOBENDAN [Concomitant]
     Active Substance: PIMOBENDAN
     Dosage: UNK
     Dates: start: 20121201, end: 20121220
  20. PREDNISOLONE. [Concomitant]
     Active Substance: PREDNISOLONE
     Dosage: UNK
     Dates: start: 20130307, end: 20130307
  21. OMEPRAZOLE. [Concomitant]
     Active Substance: OMEPRAZOLE
     Indication: PROPHYLAXIS
     Dosage: UNK
     Dates: end: 20121205
  22. NEXIUM [Concomitant]
     Active Substance: ESOMEPRAZOLE MAGNESIUM
     Dosage: UNK
     Dates: start: 20121214, end: 20130714
  23. FEBURIC [Concomitant]
     Active Substance: FEBUXOSTAT
     Dosage: UNK
     Dates: start: 20130402, end: 20130714
  24. VASOLAN [Concomitant]
     Dosage: UNK
     Dates: start: 20130403, end: 20130403
  25. ADCIRCA [Concomitant]
     Active Substance: TADALAFIL
     Indication: PULMONARY ARTERIAL HYPERTENSION
     Dosage: UNK
     Dates: start: 20110420, end: 20130714
  26. LUPRAC [Concomitant]
     Active Substance: TORSEMIDE
     Dosage: UNK
     Dates: start: 20060111, end: 20130714
  27. OMEPRAZOLE. [Concomitant]
     Active Substance: OMEPRAZOLE
     Dosage: UNK
     Dates: start: 20130618, end: 20130620
  28. PREDONINE [Concomitant]
     Active Substance: PREDNISOLONE
     Dosage: UNK
     Route: 048
     Dates: end: 20130714
  29. FESIN [SACCHARATED IRON OXIDE] [Concomitant]
     Dosage: UNK
     Dates: start: 20130403, end: 20130404
  30. HERPAMINE [Concomitant]
     Indication: RIGHT VENTRICULAR FAILURE
     Dosage: UNK
     Dates: start: 20130319, end: 20130714
  31. VASOLAN [Concomitant]
     Indication: TACHYCARDIA
     Dosage: UNK
     Dates: start: 20121227, end: 20121227
  32. AMBRISENTAN [Suspect]
     Active Substance: AMBRISENTAN
     Dosage: 7.5 MG, QD
     Route: 048
     Dates: start: 20110608, end: 20110614
  33. FLOLAN [Suspect]
     Active Substance: EPOPROSTENOL SODIUM
     Indication: PULMONARY ARTERIAL HYPERTENSION
     Dosage: 55 NANOGRAM PER KILOGRAM, Q1MINUTE
     Route: 042
     Dates: start: 200401
  34. FLOLAN [Suspect]
     Active Substance: EPOPROSTENOL SODIUM
     Dosage: 62.3 NANOGRAM PER KILOGRAM, Q1MINUTE
     Route: 042
     Dates: end: 20130714
  35. LASIX [Concomitant]
     Active Substance: FUROSEMIDE
     Dosage: UNK
     Dates: start: 20121123, end: 20121209
  36. PIROLACTON [Concomitant]
     Active Substance: SPIRONOLACTONE
     Dosage: UNK
     Dates: start: 20090908, end: 20130714
  37. VASOLAN [VERAPAMIL HYDROCHLORIDE] [Concomitant]
     Active Substance: VERAPAMIL HYDROCHLORIDE
     Dosage: UNK
     Dates: start: 20130403, end: 20130403
  38. DOPAMINE [Concomitant]
     Active Substance: DOPAMINE\DOPAMINE HYDROCHLORIDE
     Indication: RIGHT VENTRICULAR FAILURE
     Dosage: UNK
     Dates: start: 20130616, end: 20130714
  39. FERRUM [IRON] [Concomitant]
     Dosage: UNK
     Dates: start: 20120621, end: 20121205
  40. ASPARA POTASSIUM [Concomitant]
     Active Substance: POTASSIUM ASPARTATE
     Dosage: UNK
     Dates: start: 20130624, end: 20130714
  41. AMBRISENTAN [Suspect]
     Active Substance: AMBRISENTAN
     Dosage: 2.5 MG, TID
     Route: 048
     Dates: start: 20110929, end: 20111007
  42. DIGOSIN [Concomitant]
     Active Substance: DIGOXIN
     Indication: RIGHT VENTRICULAR FAILURE
     Dosage: UNK
     Dates: start: 20121227, end: 20121227
  43. DOBUX [Concomitant]
     Indication: RIGHT VENTRICULAR FAILURE
     Dosage: UNK
     Dates: start: 20130207, end: 20130402
  44. MEYLON [Concomitant]
     Active Substance: SODIUM BICARBONATE
     Dosage: UNK
     Dates: start: 20130714, end: 20130714
  45. SEFIROM [Concomitant]
     Active Substance: CEFTRIAXONE SODIUM
     Dosage: UNK
     Dates: start: 20130205, end: 20130212
  46. ALLOPURINOL. [Concomitant]
     Active Substance: ALLOPURINOL
     Dosage: UNK
     Route: 048
     Dates: end: 20130401
  47. REBAMIPIDE [Concomitant]
     Active Substance: REBAMIPIDE
     Dosage: UNK
     Dates: end: 20120620
  48. SLOW-K [Concomitant]
     Active Substance: POTASSIUM CHLORIDE
     Dosage: UNK
     Dates: end: 20130623
  49. MUCOTRON [Concomitant]
     Active Substance: CARBOCYSTEINE
     Dosage: UNK
     Dates: end: 20130620
  50. DOBUPUM [Concomitant]
     Active Substance: DOBUTAMINE HYDROCHLORIDE
     Dosage: UNK
     Dates: start: 20130609, end: 20130714
  51. FESIN [SACCHARATED IRON OXIDE] [Concomitant]
     Dosage: UNK
     Dates: start: 20130709, end: 20130711
  52. ALENDRONATE [Concomitant]
     Active Substance: ALENDRONATE SODIUM
     Dosage: UNK
     Dates: start: 20121213, end: 20130712
  53. AMBRISENTAN [Suspect]
     Active Substance: AMBRISENTAN
     Dosage: 2.5 MG, BID
     Route: 048
     Dates: start: 20111008, end: 20130714
  54. LASIX [Concomitant]
     Active Substance: FUROSEMIDE
     Dosage: UNK
     Dates: start: 20130206, end: 20130207

REACTIONS (10)
  - Platelet count decreased [Recovering/Resolving]
  - Pneumonia [Not Recovered/Not Resolved]
  - Condition aggravated [Fatal]
  - Pneumonia [Not Recovered/Not Resolved]
  - Device related infection [Recovering/Resolving]
  - Haemoglobin decreased [Recovering/Resolving]
  - Cellulitis [Recovering/Resolving]
  - Cellulitis [Recovered/Resolved]
  - Taste disorder [Recovering/Resolving]
  - Off label use [Not Recovered/Not Resolved]

NARRATIVE: CASE EVENT DATE: 20110604
